FAERS Safety Report 7529839-0 (Version None)
Quarter: 2011Q2

REPORT INFORMATION
  Report Type: 
  Country: None (occurrence: None)
  Receive Date: 20110607
  Receipt Date: 20110524
  Transmission Date: 20111010
  Serious: Yes (Other)
  Sender: FDA-Public Use
  Company Number: US-AMGEN-USASP2011019505

PATIENT
  Age: 63 Year
  Sex: Male

DRUGS (4)
  1. ZANTAC [Concomitant]
  2. AMLODIPINE [Concomitant]
  3. NEUPOGEN [Suspect]
     Indication: PERIPHERAL BLOOD STEM CELL APHERESIS
     Dates: start: 20110226, end: 20110302
  4. METOPROLOL SUCCINATE [Concomitant]

REACTIONS (6)
  - RASH ERYTHEMATOUS [None]
  - RASH PRURITIC [None]
  - ORAL CANDIDIASIS [None]
  - INSOMNIA [None]
  - RASH GENERALISED [None]
  - HYPERSENSITIVITY [None]
